FAERS Safety Report 10557132 (Version 1)
Quarter: 2014Q4

REPORT INFORMATION
  Report Type: Spontaneous
  Country: US (occurrence: US)
  Receive Date: 20141031
  Receipt Date: 20141031
  Transmission Date: 20150529
  Serious: Yes (Other)
  Sender: FDA-Public Use
  Company Number: US-GLAXOSMITHKLINE-US2014GSK015277

PATIENT
  Age: 7 Month

DRUGS (1)
  1. MELPHALAN [Suspect]
     Active Substance: MELPHALAN
     Indication: RETINOBLASTOMA
     Dosage: 3 MG, UNK

REACTIONS (3)
  - Off label use [Unknown]
  - Pain in extremity [Recovered/Resolved]
  - Skin discolouration [Recovered/Resolved]
